FAERS Safety Report 6440863-1 (Version None)
Quarter: 2009Q4

REPORT INFORMATION
  Report Type: 
  Country: None (occurrence: None)
  Receive Date: 20091116
  Receipt Date: 20091110
  Transmission Date: 20100525
  Serious: Yes (Death)
  Sender: FDA-Public Use
  Company Number: JP-ELI_LILLY_AND_COMPANY-JP200910000648

PATIENT
  Age: 75 Year
  Sex: Male

DRUGS (3)
  1. ALIMTA [Suspect]
     Indication: NON-SMALL CELL LUNG CANCER
     Dosage: 500 MG/M2, UNKNOWN
     Route: 042
     Dates: end: 20090701
  2. PANVITAN [Concomitant]
     Indication: PROPHYLAXIS
     Dosage: 0.5 MG, DAILY (1/D)
     Route: 048
  3. METHYCOBAL [Concomitant]
     Indication: PROPHYLAXIS
     Dosage: 1 MG, DAILY (1/D)
     Route: 030

REACTIONS (1)
  - HEPATIC FAILURE [None]
